FAERS Safety Report 9198618 (Version 1)
Quarter: 2013Q1

REPORT INFORMATION
  Report Type: Spontaneous
  Country: AU (occurrence: AU)
  Receive Date: 20130329
  Receipt Date: 20130329
  Transmission Date: 20140127
  Serious: Yes (Other)
  Sender: FDA-Public Use
  Company Number: AU-JNJFOC-20130316649

PATIENT
  Sex: Female

DRUGS (1)
  1. NICORETTE [Suspect]
     Indication: SMOKING CESSATION THERAPY
     Dosage: 4 MG GUM, 15 PIECES OF GUMS A DAY
     Route: 048

REACTIONS (3)
  - Nicotine dependence [Unknown]
  - Intentional drug misuse [Unknown]
  - Overdose [Unknown]
